FAERS Safety Report 25475507 (Version 1)
Quarter: 2025Q2

REPORT INFORMATION
  Report Type: Spontaneous
  Country: US (occurrence: US)
  Receive Date: 20250624
  Receipt Date: 20250624
  Transmission Date: 20250716
  Serious: Yes (Other)
  Sender: NOVARTIS
  Company Number: US-002147023-NVSC2025US100379

PATIENT
  Sex: Female

DRUGS (10)
  1. GILENYA [Suspect]
     Active Substance: FINGOLIMOD HYDROCHLORIDE
     Indication: Product used for unknown indication
     Dosage: 0.05 MG, QD (1 X DAILY)
     Route: 065
  2. OLMESARTAN [Concomitant]
     Active Substance: OLMESARTAN
     Indication: Product used for unknown indication
     Dosage: 40 MG, QD (1X DAILY)
     Route: 065
  3. ESCITALOPRAM [Concomitant]
     Active Substance: ESCITALOPRAM OXALATE
     Indication: Product used for unknown indication
     Dosage: 10 MG, QD (1X DAILY)
     Route: 065
  4. ROSUVASTATIN CALCIUM [Concomitant]
     Active Substance: ROSUVASTATIN CALCIUM
     Indication: Product used for unknown indication
     Dosage: 5 MG, QD (1X DAILY)
     Route: 065
  5. VITAMIN D [Concomitant]
     Active Substance: VITAMIN D NOS
     Indication: Product used for unknown indication
     Dosage: 5000 MG, QD (1 X DAILY)
     Route: 065
  6. VITAMIN K [Concomitant]
     Active Substance: PHYTONADIONE
     Indication: Product used for unknown indication
     Dosage: 6090 MG, QD (1 X DAILY)
     Route: 065
  7. Berberin [Concomitant]
     Indication: Product used for unknown indication
     Dosage: 450 MG, BID (2 X DAILY)
     Route: 065
  8. BIOTIN [Concomitant]
     Active Substance: BIOTIN
     Indication: Product used for unknown indication
     Dosage: 10000 MG, QD (1 X DAILY)
     Route: 065
  9. LATANOPROST [Concomitant]
     Active Substance: LATANOPROST
     Indication: Product used for unknown indication
     Dosage: 0.005 %, QD (1 X DAILY)
     Route: 065
  10. OMEPRAZOLE [Concomitant]
     Active Substance: OMEPRAZOLE
     Indication: Product used for unknown indication
     Route: 065

REACTIONS (14)
  - Cerebrovascular accident [Unknown]
  - Syncope [Unknown]
  - Feeling abnormal [Unknown]
  - Anxiety [Unknown]
  - Thermal burn [Unknown]
  - Illness [Unknown]
  - Balance disorder [Unknown]
  - Product dose omission issue [Unknown]
  - Vertigo [Unknown]
  - Chest pain [Unknown]
  - Feeling of body temperature change [Unknown]
  - Depression [Unknown]
  - Vertigo [Unknown]
  - Heat stroke [Unknown]
